FAERS Safety Report 8648174 (Version 2)
Quarter: 2012Q4

REPORT INFORMATION
  Report Type: 
  Country: AU (occurrence: AU)
  Receive Date: 20120703
  Receipt Date: 20120906
  Transmission Date: 20130627
  Serious: Yes (Hospitalization, Disabling)
  Sender: FDA-Public Use
  Company Number: PHHY2012AU055942

PATIENT
  Age: 32 Year
  Sex: Female

DRUGS (2)
  1. CLOZARIL [Suspect]
     Indication: SCHIZOPHRENIA
     Dosage: 450 mg, UNK
     Route: 048
     Dates: start: 20110503
  2. CLOZARIL [Suspect]
     Dosage: 450 mg, UNK
     Route: 048

REACTIONS (3)
  - Upper limb fracture [Recovered/Resolved with Sequelae]
  - Convulsion [Recovered/Resolved with Sequelae]
  - Antipsychotic drug level increased [Unknown]
